FAERS Safety Report 11682283 (Version 1)
Quarter: 2015Q4

REPORT INFORMATION
  Report Type: Other
  Country: US (occurrence: US)
  Receive Date: 20151029
  Receipt Date: 20151029
  Transmission Date: 20160304
  Serious: Yes (Other)
  Sender: FDA-Public Use
  Company Number: US-SHIRE-US201513183

PATIENT
  Age: 64 Year
  Sex: Female

DRUGS (1)
  1. LIALDA [Suspect]
     Active Substance: MESALAMINE
     Indication: PRODUCT USED FOR UNKNOWN INDICATION
     Dosage: UNK, UNKNOWN
     Route: 048
     Dates: start: 2010

REACTIONS (3)
  - Condition aggravated [Unknown]
  - Diarrhoea [Unknown]
  - Haemorrhage [Unknown]

NARRATIVE: CASE EVENT DATE: 201508
